FAERS Safety Report 4620321-7 (Version None)
Quarter: 2005Q1

REPORT INFORMATION
  Report Type: 
  Country: None (occurrence: None)
  Receive Date: 20050324
  Receipt Date: 20050304
  Transmission Date: 20050727
  Serious: Yes (Other)
  Sender: FDA-Public Use
  Company Number: DE_050315388

PATIENT
  Age: 70 Year
  Sex: Female

DRUGS (1)
  1. YENTREVE (DULOXETINE HYDROCHLORIDE) [Suspect]
     Indication: URINARY INCONTINENCE
     Dosage: 40 MG/1 IN THE MORNING

REACTIONS (3)
  - FALL [None]
  - HAEMATOMA [None]
  - HALLUCINATION, VISUAL [None]
